FAERS Safety Report 5593432-X (Version None)
Quarter: 2008Q1

REPORT INFORMATION
  Report Type: 
  Country: None (occurrence: None)
  Receive Date: 20080114
  Receipt Date: 20080102
  Transmission Date: 20080703
  Serious: Yes (Death, Life-Threatening)
  Sender: FDA-Public Use
  Company Number: 2008S1000091

PATIENT
  Age: 24 Year
  Sex: Female

DRUGS (2)
  1. AZATHIOPRINE [Suspect]
     Indication: DRUG USE FOR UNKNOWN INDICATION
     Dosage: 75 MG;ORAL;DAILY
     Route: 048
     Dates: start: 19980309
  2. PENTASA [Concomitant]

REACTIONS (1)
  - T-CELL LYMPHOMA [None]
